FAERS Safety Report 6245639-6 (Version None)
Quarter: 2009Q2

REPORT INFORMATION
  Report Type: 
  Country: None (occurrence: None)
  Receive Date: 20090625
  Receipt Date: 20090120
  Transmission Date: 20091009
  Serious: No
  Sender: FDA-Public Use
  Company Number: US-ASTRAZENECA-2008UW26494

PATIENT
  Age: 72 Year
  Sex: Male

DRUGS (7)
  1. ZOLADEX [Suspect]
     Indication: PROSTATE CANCER
     Route: 058
  2. MEGACE [Concomitant]
     Indication: HOT FLUSH
  3. PLAVIX [Concomitant]
  4. SOTALOL HYDROCHLORIDE [Concomitant]
  5. VITAMINS [Concomitant]
  6. ZETIA [Concomitant]
  7. ZOCOR [Concomitant]

REACTIONS (2)
  - HOT FLUSH [None]
  - ILL-DEFINED DISORDER [None]
